FAERS Safety Report 17466270 (Version 1)
Quarter: 2020Q1

REPORT INFORMATION
  Report Type: Spontaneous
  Country: US (occurrence: US)
  Receive Date: 20200227
  Receipt Date: 20200227
  Transmission Date: 20200409
  Serious: No
  Sender: FDA-Public Use
  Company Number: NVSC2020US054206

PATIENT
  Age: 55 Year
  Sex: Female

DRUGS (2)
  1. TAFINLAR [Suspect]
     Active Substance: DABRAFENIB MESYLATE
     Indication: THYROID CANCER
     Dosage: 75 MG, Q12H
     Route: 048
     Dates: start: 20200127
  2. MEKINIST [Suspect]
     Active Substance: TRAMETINIB DIMETHYL SULFOXIDE
     Indication: THYROID CANCER
     Dosage: 2 MG, QD (AT BEDTIME)
     Route: 048
     Dates: start: 20200127

REACTIONS (4)
  - Rash pustular [Recovering/Resolving]
  - Pyrexia [Recovering/Resolving]
  - Photosensitivity reaction [Recovering/Resolving]
  - Vision blurred [Recovering/Resolving]

NARRATIVE: CASE EVENT DATE: 20200218
